FAERS Safety Report 7146571-6 (Version None)
Quarter: 2010Q4

REPORT INFORMATION
  Report Type: 
  Country: None (occurrence: None)
  Receive Date: 20101208
  Receipt Date: 20101202
  Transmission Date: 20110411
  Serious: Yes (Hospitalization, Other)
  Sender: FDA-Public Use
  Company Number: BR-ABBOTT-10P-020-0667899-00

PATIENT
  Sex: Male
  Weight: 79 kg

DRUGS (12)
  1. HUMIRA [Suspect]
     Indication: PSORIASIS
     Route: 058
     Dates: start: 20091101, end: 20101101
  2. HUMIRA [Suspect]
     Route: 058
     Dates: end: 20101101
  3. HUMIRA [Suspect]
     Route: 058
  4. PREDNISONE [Suspect]
     Indication: PRODUCT USED FOR UNKNOWN INDICATION
     Route: 048
     Dates: start: 20100611, end: 20100709
  5. PREDNISONE [Suspect]
     Route: 048
     Dates: start: 20100709, end: 20100820
  6. PREDNISONE [Suspect]
     Route: 048
     Dates: start: 20100820
  7. CALCIUM [Concomitant]
     Indication: BONE DISORDER
     Route: 048
     Dates: start: 20100601
  8. ENALAPRIL [Concomitant]
     Indication: HYPERTENSION
     Route: 048
  9. HYDROCHLOROTHIAZIDE [Concomitant]
     Indication: HYPERTENSION
     Route: 048
  10. AMLODIPINE [Concomitant]
     Indication: HYPERTENSION
     Route: 048
     Dates: start: 20100601
  11. OMEPRAZOLE [Concomitant]
     Indication: ULCER
     Route: 048
     Dates: start: 20100601
  12. PREDNISONE [Concomitant]
     Indication: PSORIASIS
     Route: 048
     Dates: start: 20100601

REACTIONS (6)
  - ANAEMIA [None]
  - DIABETES MELLITUS [None]
  - GASTRIC HAEMORRHAGE [None]
  - GASTROINTESTINAL INFECTION [None]
  - PSORIASIS [None]
  - VISUAL IMPAIRMENT [None]
